FAERS Safety Report 16281313 (Version 1)
Quarter: 2019Q2

REPORT INFORMATION
  Report Type: Spontaneous
  Country: US (occurrence: US)
  Receive Date: 20190402
  Receipt Date: 20190402
  Transmission Date: 20190711
  Serious: No
  Sender: FDA-Public Use
  Company Number: None

PATIENT
  Age: 74 Year
  Sex: Female
  Weight: 90.72 kg

DRUGS (1)
  1. METHOTREXATE  50MG/2ML MDV, [Suspect]
     Active Substance: METHOTREXATE
     Indication: RHEUMATOID ARTHRITIS
     Dosage: ?          OTHER DOSE:INJECT 0.5ML (12.5MGTHE SAME DAY EACH;?
     Route: 058
     Dates: start: 201710

REACTIONS (2)
  - Influenza [None]
  - Rib fracture [None]
